FAERS Safety Report 16660513 (Version 2)
Quarter: 2019Q3

REPORT INFORMATION
  Report Type: Spontaneous
  Country: US (occurrence: US)
  Receive Date: 20190802
  Receipt Date: 20190807
  Transmission Date: 20191004
  Serious: No
  Sender: FDA-Public Use
  Company Number: US-BAYER-2019-140494

PATIENT
  Age: 72 Year
  Sex: Female

DRUGS (2)
  1. CROMOLYN [CROMOGLICIC ACID] [Concomitant]
     Active Substance: CROMOLYN
     Dosage: UNK
  2. ESTRADIOL. [Suspect]
     Active Substance: ESTRADIOL
     Dosage: UNK
     Route: 062
     Dates: start: 201903

REACTIONS (3)
  - Vulvovaginal discomfort [None]
  - Inappropriate schedule of product administration [None]
  - Hot flush [None]

NARRATIVE: CASE EVENT DATE: 2019
